FAERS Safety Report 22189044 (Version 2)
Quarter: 2023Q2

REPORT INFORMATION
  Report Type: Report from Study
  Country: FR (occurrence: FR)
  Receive Date: 20230410
  Receipt Date: 20230510
  Transmission Date: 20230722
  Serious: Yes (Other)
  Sender: FDA-Public Use
  Company Number: FR-JNJFOC-20230409079

PATIENT
  Age: 28 Year
  Sex: Female

DRUGS (3)
  1. SPRAVATO [Suspect]
     Active Substance: ESKETAMINE
     Indication: Product used for unknown indication
     Dates: start: 20220801, end: 20220809
  2. SPRAVATO [Suspect]
     Active Substance: ESKETAMINE
     Dates: start: 202208, end: 20220818
  3. SPRAVATO [Suspect]
     Active Substance: ESKETAMINE
     Dates: start: 202208, end: 20220825

REACTIONS (3)
  - Suicide attempt [Recovering/Resolving]
  - Depression [Recovering/Resolving]
  - Drug ineffective [Unknown]

NARRATIVE: CASE EVENT DATE: 20230326
